FAERS Safety Report 5049887-2 (Version None)
Quarter: 2006Q3

REPORT INFORMATION
  Report Type: 
  Country: None (occurrence: None)
  Receive Date: 20060706
  Receipt Date: 20060622
  Transmission Date: 20061208
  Serious: Yes (Hospitalization)
  Sender: FDA-Public Use
  Company Number: 226614

PATIENT
  Age: 70 Year
  Sex: Female

DRUGS (3)
  1. AVASTIN [Suspect]
     Indication: NON-SMALL CELL LUNG CANCER
     Dosage: 1248 MG, INTRAVENOUS
     Route: 042
     Dates: start: 20060605
  2. CARBOPLATIN [Suspect]
     Indication: NON-SMALL CELL LUNG CANCER
     Dosage: 608 MG, INTRAVENOUS
     Route: 036
     Dates: start: 20060605
  3. DOCETAXEL (DOCETAXEL) [Suspect]
     Indication: NON-SMALL CELL LUNG CANCER
     Dosage: 145 MG; INTRAVENOUS
     Route: 042
     Dates: start: 20060605

REACTIONS (2)
  - ERYTHEMA [None]
  - INFLAMMATION [None]
